FAERS Safety Report 12887302 (Version 1)
Quarter: 2016Q4

REPORT INFORMATION
  Report Type: Report from Study
  Country: US (occurrence: US)
  Receive Date: 20161026
  Receipt Date: 20161026
  Transmission Date: 20170207
  Serious: Yes (Death, Life-Threatening, Other)
  Sender: FDA-Public Use
  Company Number: US-JAZZ-2014-US-019239

PATIENT
  Age: 51 Year
  Sex: Male
  Weight: 59.6 kg

DRUGS (11)
  1. ALBUMIN [Concomitant]
     Active Substance: ALBUMIN HUMAN
     Dosage: 100 ML, DAILY
     Route: 042
     Dates: start: 20141003
  2. ACTIGALL [Concomitant]
     Active Substance: URSODIOL
     Indication: PROPHYLAXIS
     Dosage: 900 MG, DAILY
     Route: 048
     Dates: start: 20141003
  3. MICAFUNGIN [Concomitant]
     Active Substance: MICAFUNGIN
     Indication: PROPHYLAXIS
     Dosage: 100 MG, DAILY
     Route: 042
     Dates: start: 20141002
  4. MAGNESIUM [Concomitant]
     Active Substance: MAGNESIUM
     Dosage: 1 G, DAILY
     Route: 042
     Dates: start: 20141004
  5. PEPCID [Concomitant]
     Active Substance: FAMOTIDINE
     Indication: PROPHYLAXIS
     Dosage: 40 MG, DAILY
     Route: 042
     Dates: start: 20141002
  6. FLAGYL [Concomitant]
     Active Substance: METRONIDAZOLE\METRONIDAZOLE HYDROCHLORIDE
     Indication: PROPHYLAXIS
     Dosage: 500 MG, DAILY
     Route: 042
     Dates: start: 20141003
  7. PREDNISONE. [Concomitant]
     Active Substance: PREDNISONE
     Dosage: 20 MG, DAILY
     Route: 042
     Dates: start: 20141002, end: 20141006
  8. DEFIBROTIDE (INV) [Suspect]
     Active Substance: DEFIBROTIDE SODIUM
     Indication: VENOOCCLUSIVE LIVER DISEASE
     Dosage: 1560 MG (25 MG/KG, QD)
     Route: 042
     Dates: start: 20141003, end: 20141006
  9. TACROLIMUS. [Concomitant]
     Active Substance: TACROLIMUS
     Indication: PROPHYLAXIS
     Dosage: 1.2 MG, DAILY
     Route: 042
     Dates: start: 20141002, end: 20141004
  10. CELLCEPT [Concomitant]
     Active Substance: MYCOPHENOLATE MOFETIL\MYCOPHENOLATE MOFETIL HYDROCHLORIDE
     Indication: PROPHYLAXIS
     Dosage: 1 G, DAILY
     Route: 042
     Dates: start: 20141004, end: 20141005
  11. ACYCLOVIR. [Concomitant]
     Active Substance: ACYCLOVIR
     Indication: PROPHYLAXIS
     Dosage: 800 MG,DAILY
     Route: 042
     Dates: start: 20141002

REACTIONS (3)
  - Atrial fibrillation [Recovered/Resolved]
  - Pulmonary haemorrhage [Recovered/Resolved]
  - Respiratory failure [Fatal]

NARRATIVE: CASE EVENT DATE: 20141006
